FAERS Safety Report 11341631 (Version 1)
Quarter: 2015Q3

REPORT INFORMATION
  Report Type: Spontaneous
  Country: US (occurrence: None)
  Receive Date: 20150803
  Receipt Date: 20150803
  Transmission Date: 20151125
  Serious: No
  Sender: FDA-Public Use
  Company Number: None

PATIENT
  Age: 47 Year
  Sex: Male
  Weight: 108.86 kg

DRUGS (6)
  1. FINASTERIDE. [Suspect]
     Active Substance: FINASTERIDE
     Indication: ANDROGENETIC ALOPECIA
     Dosage: 0.25 TO ONE PILL PER DAY  ONCE DAILY  TAKEN BY MOUTH
     Route: 048
  2. BABY ASPIRIN [Concomitant]
     Active Substance: ASPIRIN
  3. FINASTERIDE. [Suspect]
     Active Substance: FINASTERIDE
     Indication: CHORIORETINOPATHY
     Dosage: 0.25 TO ONE PILL PER DAY  ONCE DAILY  TAKEN BY MOUTH
     Route: 048
  4. FISH OIL [Concomitant]
     Active Substance: FISH OIL
  5. WELLBUTRIN XL [Concomitant]
     Active Substance: BUPROPION HYDROCHLORIDE
  6. COENZYME Q10 [Concomitant]
     Active Substance: UBIDECARENONE

REACTIONS (1)
  - Peyronie^s disease [None]

NARRATIVE: CASE EVENT DATE: 20131015
